FAERS Safety Report 4595106-0 (Version None)
Quarter: 2005Q1

REPORT INFORMATION
  Report Type: 
  Country: None (occurrence: None)
  Receive Date: 20050225
  Receipt Date: 20050208
  Transmission Date: 20050727
  Serious: Yes (Other)
  Sender: FDA-Public Use
  Company Number: 200501051

PATIENT
  Age: 24 Year
  Sex: Female

DRUGS (1)
  1. ORAL EPINASTINE [Suspect]

REACTIONS (6)
  - CHILLS [None]
  - DIZZINESS [None]
  - FACE OEDEMA [None]
  - FEELING COLD [None]
  - PALPITATIONS [None]
  - VOMITING [None]
